FAERS Safety Report 8070320-0 (Version None)
Quarter: 2012Q1

REPORT INFORMATION
  Report Type: 
  Country: None (occurrence: None)
  Receive Date: 20120125
  Receipt Date: 20120120
  Transmission Date: 20120608
  Serious: Yes (Hospitalization)
  Sender: FDA-Public Use
  Company Number: US-PFIZER INC-2012017344

PATIENT
  Sex: Female
  Weight: 118 kg

DRUGS (8)
  1. LEXAPRO [Concomitant]
     Indication: ANXIETY
  2. ATIVAN [Concomitant]
     Indication: ANXIETY
     Dosage: 3 MG, 1X/DAY
     Route: 048
  3. ATIVAN [Concomitant]
     Indication: PANIC ATTACK
  4. TRANDOLAPRIL [Suspect]
     Indication: BLOOD PRESSURE ABNORMAL
     Dosage: 4 MG, 1X/DAY
     Dates: end: 20111201
  5. LIPITOR [Suspect]
     Indication: BLOOD CHOLESTEROL INCREASED
     Dosage: 10 MG, DAILY
     Route: 048
  6. LEXAPRO [Concomitant]
     Indication: DEPRESSION
     Dosage: 20 MG, 1X/DAY
  7. ATIVAN [Concomitant]
     Indication: DEPRESSION
  8. ZYRTEC [Concomitant]
     Indication: HYPERSENSITIVITY
     Dosage: 10 MG, 1X/DAY

REACTIONS (3)
  - OXYGEN SATURATION DECREASED [None]
  - ARRHYTHMIA [None]
  - BLOOD PRESSURE FLUCTUATION [None]
